FAERS Safety Report 22378633 (Version 1)
Quarter: 2023Q2

REPORT INFORMATION
  Report Type: Spontaneous
  Country: US (occurrence: US)
  Receive Date: 20230529
  Receipt Date: 20230529
  Transmission Date: 20230722
  Serious: No
  Sender: FDA-Public Use
  Company Number: US-PERRIGO-22US016213

PATIENT
  Age: 45 Year
  Sex: Male
  Weight: 75.737 kg

DRUGS (3)
  1. MINOXIDIL [Suspect]
     Active Substance: MINOXIDIL
     Indication: Alopecia
     Dosage: 1/2 CAP, BID
     Route: 061
     Dates: start: 202109, end: 202206
  2. MINOXIDIL [Suspect]
     Active Substance: MINOXIDIL
     Dosage: 3/4 CAP, DAILY
     Route: 061
     Dates: start: 202206, end: 20220927
  3. MINOXIDIL [Suspect]
     Active Substance: MINOXIDIL
     Dosage: 1/2 CAP, BID
     Route: 061
     Dates: start: 20221017, end: 20221018

REACTIONS (5)
  - Application site exfoliation [Recovered/Resolved]
  - Alopecia [Unknown]
  - Application site erythema [Recovered/Resolved]
  - Incorrect dose administered [Recovered/Resolved]
  - Inappropriate schedule of product administration [Recovered/Resolved]

NARRATIVE: CASE EVENT DATE: 20220601
